FAERS Safety Report 7854039-4 (Version None)
Quarter: 2011Q4

REPORT INFORMATION
  Report Type: 
  Country: None (occurrence: None)
  Receive Date: 20111026
  Receipt Date: 20111014
  Transmission Date: 20120403
  Serious: Yes (Hospitalization)
  Sender: FDA-Public Use
  Company Number: DE-PFIZER INC-2011257590

PATIENT
  Age: 55 Year
  Sex: Male

DRUGS (4)
  1. THYRONAJOD [Concomitant]
     Indication: THYROIDECTOMY
     Dosage: 150 MG, 1X/DAY
     Route: 048
     Dates: start: 19860101
  2. SUNITINIB MALATE [Suspect]
     Indication: METASTATIC RENAL CELL CARCINOMA
     Dosage: 50 MG, 1X/DAY
     Route: 048
     Dates: start: 20110913, end: 20111010
  3. PANTOPRAZOLE SODIUM [Concomitant]
     Indication: OESOPHAGITIS
     Dosage: 40 MG, 1X/DAY
     Route: 048
     Dates: start: 19850101
  4. AZOPT [Concomitant]
     Indication: GLAUCOMA
     Dosage: DROPS, 2X/DAY
     Dates: start: 20090101

REACTIONS (1)
  - CEREBRAL VENOUS THROMBOSIS [None]
